FAERS Safety Report 4466349-1 (Version None)
Quarter: 2004Q4

REPORT INFORMATION
  Report Type: 
  Country: None (occurrence: None)
  Receive Date: 20041005
  Receipt Date: 20040924
  Transmission Date: 20050328
  Serious: Yes (Congenital Anomaly)
  Sender: FDA-Public Use
  Company Number: GB-GLAXOSMITHKLINE-B0346905A

PATIENT

DRUGS (3)
  1. ZIDOVUDINE [Suspect]
     Indication: HIV INFECTION
     Dosage: 500MG PER DAY
     Dates: start: 20000101
  2. NEVIRAPINE [Suspect]
     Indication: HIV INFECTION
     Dosage: 400MG PER DAY
     Dates: start: 20000101
  3. DIDANOSINE [Suspect]
     Indication: HIV INFECTION
     Dosage: 400MG PER DAY

REACTIONS (4)
  - CONGENITAL ANOMALY [None]
  - DRUG EXPOSURE DURING PREGNANCY [None]
  - FOETAL DISORDER [None]
  - FOETAL MALFORMATION [None]
